FAERS Safety Report 5571243-9 (Version None)
Quarter: 2007Q4

REPORT INFORMATION
  Report Type: 
  Country: None (occurrence: None)
  Receive Date: 20071221
  Receipt Date: 20070319
  Transmission Date: 20080405
  Serious: No
  Sender: FDA-Public Use
  Company Number: A0643693A

PATIENT
  Age: 71 Year
  Sex: Female

DRUGS (10)
  1. FLONASE [Suspect]
     Dosage: 2SPR PER DAY
     Route: 045
     Dates: start: 20060501
  2. NASONEX [Suspect]
     Dosage: 1SPR PER DAY
     Dates: start: 20061001
  3. LISINOPRIL [Concomitant]
  4. WARFARIN SODIUM [Concomitant]
  5. COREG [Concomitant]
  6. DIGOXIN [Concomitant]
  7. AMOXIL [Concomitant]
  8. FLONASE [Concomitant]
  9. UNKNOWN DRUG [Concomitant]
  10. FOLIC ACID [Concomitant]

REACTIONS (1)
  - DRUG INEFFECTIVE [None]
